FAERS Safety Report 9821185 (Version 1)
Quarter: 2014Q1

REPORT INFORMATION
  Report Type: Spontaneous
  Country: US (occurrence: None)
  Receive Date: 20140115
  Receipt Date: 20140115
  Transmission Date: 20141002
  Serious: Yes (Other)
  Sender: FDA-Public Use
  Company Number: None

PATIENT
  Age: 40 Year
  Sex: Female
  Weight: 61.24 kg

DRUGS (1)
  1. MINIVELLE [Suspect]
     Indication: HORMONE REPLACEMENT THERAPY
     Dosage: K 1 PATCH 2X WEEK APPLIED TO A SURFACE USUALLY THE SKIN
     Dates: start: 20131002, end: 20131023

REACTIONS (10)
  - Limb discomfort [None]
  - Limb discomfort [None]
  - Arthralgia [None]
  - Paraesthesia [None]
  - Burning sensation [None]
  - Feeling of body temperature change [None]
  - Insomnia [None]
  - Abasia [None]
  - Impaired work ability [None]
  - Economic problem [None]
